FAERS Safety Report 21797728 (Version 3)
Quarter: 2023Q1

REPORT INFORMATION
  Report Type: Report from Study
  Country: CL (occurrence: CL)
  Receive Date: 20221230
  Receipt Date: 20230203
  Transmission Date: 20230418
  Serious: Yes (Hospitalization, Other)
  Sender: FDA-Public Use
  Company Number: CL-002147023-NVSC2021CL273023

PATIENT
  Age: 53 Year
  Sex: Female

DRUGS (11)
  1. COSENTYX [Suspect]
     Active Substance: SECUKINUMAB
     Indication: Psoriatic arthropathy
     Dosage: 150 MG, QMO
     Route: 058
     Dates: start: 20191113
  2. COSENTYX [Suspect]
     Active Substance: SECUKINUMAB
     Dosage: 300 MG, QMO
     Route: 058
  3. COSENTYX [Suspect]
     Active Substance: SECUKINUMAB
     Dosage: 150 MG
     Route: 058
     Dates: start: 20211119
  4. COSENTYX [Suspect]
     Active Substance: SECUKINUMAB
     Dosage: 150 MG, QMO
     Route: 065
     Dates: start: 20220104
  5. COSENTYX [Suspect]
     Active Substance: SECUKINUMAB
     Dosage: 150 MG, QMO
     Route: 058
     Dates: start: 20220810
  6. COSENTYX [Suspect]
     Active Substance: SECUKINUMAB
     Dosage: 150 MG, Q2W (ONCE EVERY 15 DAYS)
     Route: 058
     Dates: start: 20220912
  7. COSENTYX [Suspect]
     Active Substance: SECUKINUMAB
     Dosage: 300 MG, QMO
     Route: 058
  8. COSENTYX [Suspect]
     Active Substance: SECUKINUMAB
     Dosage: 150 MG, Q2W
     Route: 058
  9. COSENTYX [Suspect]
     Active Substance: SECUKINUMAB
     Dosage: 300 MG
     Route: 058
     Dates: start: 20221114
  10. COSENTYX [Suspect]
     Active Substance: SECUKINUMAB
     Dosage: 300 MG, QMO
     Route: 058
     Dates: start: 20221116
  11. COSENTYX [Suspect]
     Active Substance: SECUKINUMAB
     Dosage: UNK (09 DEC, APPLIED LAST DOSE)
     Route: 065

REACTIONS (22)
  - Cauda equina syndrome [Unknown]
  - Psoriatic arthropathy [Unknown]
  - Visual impairment [Unknown]
  - Ill-defined disorder [Unknown]
  - Malaise [Unknown]
  - Hand deformity [Unknown]
  - Foot deformity [Unknown]
  - Back pain [Unknown]
  - Skin haemorrhage [Unknown]
  - Scab [Unknown]
  - Pruritus [Unknown]
  - Dry skin [Unknown]
  - Osteoarthritis [Unknown]
  - Osteoporosis [Unknown]
  - Product deposit [Unknown]
  - Device mechanical issue [Unknown]
  - Decreased immune responsiveness [Unknown]
  - Discomfort [Unknown]
  - Rebound psoriasis [Unknown]
  - Skin plaque [Unknown]
  - Skin exfoliation [Recovering/Resolving]
  - Off label use [Unknown]

NARRATIVE: CASE EVENT DATE: 20221216
